FAERS Safety Report 16104304 (Version 4)
Quarter: 2020Q3

REPORT INFORMATION
  Report Type: Spontaneous
  Country: US (occurrence: US)
  Receive Date: 20190322
  Receipt Date: 20200722
  Transmission Date: 20201102
  Serious: Yes (Death, Other)
  Sender: FDA-Public Use
  Company Number: US-GLAXOSMITHKLINE-US2019GSK050764

PATIENT
  Sex: Male

DRUGS (5)
  1. PREVACID 24 HR [Suspect]
     Active Substance: LANSOPRAZOLE
     Indication: PRODUCT USED FOR UNKNOWN INDICATION
     Dosage: UNKNOWN, UNKNOWN
     Route: 048
  2. ESOMEPRAZOLE. [Suspect]
     Active Substance: ESOMEPRAZOLE MAGNESIUM
     Indication: GASTROOESOPHAGEAL REFLUX DISEASE
     Dosage: 40 MG
     Route: 065
  3. NEXIUM [Suspect]
     Active Substance: ESOMEPRAZOLE MAGNESIUM
     Indication: PRODUCT USED FOR UNKNOWN INDICATION
     Dosage: UNK
     Route: 065
     Dates: start: 200411, end: 201312
  4. PREVACID [Suspect]
     Active Substance: LANSOPRAZOLE
     Indication: PRODUCT USED FOR UNKNOWN INDICATION
     Dosage: UNK
     Route: 065
  5. PREVACID [Suspect]
     Active Substance: LANSOPRAZOLE
     Dosage: UNK
     Route: 065

REACTIONS (5)
  - Proteinuria [Unknown]
  - Renal injury [Unknown]
  - Death [Fatal]
  - End stage renal disease [Unknown]
  - Chronic kidney disease [Unknown]
